FAERS Safety Report 13739045 (Version 1)
Quarter: 2017Q3

REPORT INFORMATION
  Report Type: Spontaneous
  Country: US (occurrence: US)
  Receive Date: 20170710
  Receipt Date: 20170710
  Transmission Date: 20171127
  Serious: Yes (Other)
  Sender: FDA-Public Use
  Company Number: US-SAOL THERAPEUTICS-2017SAO00771

PATIENT
  Age: 77 Year
  Sex: Female
  Weight: 55.33 kg

DRUGS (19)
  1. MULTIVITAMIN [Concomitant]
     Active Substance: VITAMINS
  2. BACLOFEN. [Suspect]
     Active Substance: BACLOFEN
     Indication: MULTIPLE SCLEROSIS
     Dosage: 1199.4 ?G, \DAY
     Route: 037
  3. TYLENOL [Concomitant]
     Active Substance: ACETAMINOPHEN
  4. BACLOFEN. [Concomitant]
     Active Substance: BACLOFEN
     Dosage: DAILY, AS NEEDED
     Route: 048
  5. DOCUSATE SODIUM. [Concomitant]
     Active Substance: DOCUSATE SODIUM
  6. BACLOFEN. [Suspect]
     Active Substance: BACLOFEN
     Indication: MUSCLE SPASTICITY
     Dosage: 1200 ?G, \DAY
     Route: 037
  7. CALCIUM + VITAMIN D [Concomitant]
     Active Substance: CALCIUM\VITAMIN D
  8. OMEPRAZOLE. [Concomitant]
     Active Substance: OMEPRAZOLE
  9. BISACODYL. [Concomitant]
     Active Substance: BISACODYL
  10. CITALOPRAM [Concomitant]
     Active Substance: CITALOPRAM HYDROBROMIDE
  11. MIRAPEX [Concomitant]
     Active Substance: PRAMIPEXOLE DIHYDROCHLORIDE
  12. ASPIRIN. [Concomitant]
     Active Substance: ASPIRIN
  13. DIAZEPAM. [Concomitant]
     Active Substance: DIAZEPAM
  14. FENOFIBRATE. [Concomitant]
     Active Substance: FENOFIBRATE
  15. CRANBERRY EXTRACT [Concomitant]
     Active Substance: CRANBERRY JUICE
  16. LACTOSE-REDUCED [Concomitant]
  17. GABAPENTIN. [Concomitant]
     Active Substance: GABAPENTIN
  18. LEVOTHYROXINE. [Concomitant]
     Active Substance: LEVOTHYROXINE
  19. ZOFRAN [Concomitant]
     Active Substance: ONDANSETRON HYDROCHLORIDE

REACTIONS (4)
  - Muscle spasticity [Recovered/Resolved]
  - Device failure [Recovered/Resolved]
  - Device infusion issue [Recovered/Resolved]
  - Complication associated with device [Recovered/Resolved]

NARRATIVE: CASE EVENT DATE: 20170219
